FAERS Safety Report 5793758-0 (Version None)
Quarter: 2008Q2

REPORT INFORMATION
  Report Type: 
  Country: None (occurrence: None)
  Receive Date: 20080627
  Receipt Date: 20080617
  Transmission Date: 20081010
  Serious: Yes (Other)
  Sender: FDA-Public Use
  Company Number: US-PFIZER INC-2008052295

PATIENT
  Sex: Male
  Weight: 152.3 kg

DRUGS (10)
  1. CHANTIX [Suspect]
     Indication: SMOKING CESSATION THERAPY
  2. METFORMIN HCL [Concomitant]
  3. LISINOPRIL [Concomitant]
  4. METOPROLOL [Concomitant]
  5. HYDROCHLOROTHIAZIDE [Concomitant]
  6. SEROQUEL [Concomitant]
  7. PAXIL [Concomitant]
  8. LORTAB [Concomitant]
  9. XANAX [Concomitant]
  10. ZANTAC [Concomitant]

REACTIONS (1)
  - BLOOD GLUCOSE INCREASED [None]
